FAERS Safety Report 11892001 (Version 1)
Quarter: 2016Q1

REPORT INFORMATION
  Report Type: Report from Study
  Country: KR (occurrence: KR)
  Receive Date: 20160106
  Receipt Date: 20160106
  Transmission Date: 20160526
  Serious: Yes (Hospitalization)
  Sender: FDA-Public Use
  Company Number: KR-CONCORDIA PHARMACEUTICALS INC.-PIN-2015-00063

PATIENT
  Age: 55 Year
  Sex: Male

DRUGS (54)
  1. GEMCITABINE [Suspect]
     Active Substance: GEMCITABINE\GEMCITABINE HYDROCHLORIDE
     Route: 042
     Dates: start: 20151028, end: 20151028
  2. GEMCITABINE [Suspect]
     Active Substance: GEMCITABINE\GEMCITABINE HYDROCHLORIDE
     Route: 042
     Dates: start: 20151211, end: 20151211
  3. CISPLATIN. [Suspect]
     Active Substance: CISPLATIN
     Indication: CHOLANGIOCARCINOMA
     Route: 042
     Dates: start: 20151001, end: 20151001
  4. CISPLATIN. [Suspect]
     Active Substance: CISPLATIN
     Route: 042
     Dates: start: 20151127, end: 20151127
  5. LANSTON [Concomitant]
     Active Substance: LANSOPRAZOLE
     Indication: PROPHYLAXIS
     Route: 048
     Dates: start: 20151022, end: 20151120
  6. MEGACE F [Concomitant]
     Indication: PROPHYLAXIS
     Route: 048
     Dates: start: 20151022, end: 20151212
  7. URSA [Concomitant]
     Indication: DISEASE COMPLICATION
     Route: 048
     Dates: start: 20151022, end: 20151225
  8. FENTORA [Concomitant]
     Active Substance: FENTANYL CITRATE
     Indication: DISEASE COMPLICATION
     Route: 048
     Dates: start: 20151026, end: 20151212
  9. MAGNESIUM OXIDE. [Concomitant]
     Active Substance: MAGNESIUM OXIDE
     Indication: PROPHYLAXIS
     Route: 048
     Dates: start: 20151106, end: 20151212
  10. KANITRON [Concomitant]
     Indication: PROPHYLAXIS
     Route: 048
     Dates: start: 20151127, end: 20151201
  11. CISPLATIN. [Suspect]
     Active Substance: CISPLATIN
     Route: 042
     Dates: start: 20151028, end: 20151028
  12. HARTMANN SOLN [Concomitant]
     Active Substance: CALCIUM CHLORIDE\POTASSIUM CHLORIDE\SODIUM CHLORIDE\SODIUM LACTATE
     Indication: PROPHYLAXIS
     Route: 042
     Dates: start: 20151121, end: 20151121
  13. NORMAL SALINE [Concomitant]
     Active Substance: SODIUM CHLORIDE
     Route: 042
     Dates: start: 20151128, end: 20151128
  14. CISPLATIN. [Suspect]
     Active Substance: CISPLATIN
     Route: 042
     Dates: start: 20151121, end: 20151121
  15. GODEX [Concomitant]
     Indication: DISEASE COMPLICATION
     Route: 048
     Dates: start: 20151026, end: 20151120
  16. SANCUSO [Concomitant]
     Active Substance: GRANISETRON
     Route: 003
     Dates: start: 20151210, end: 20151210
  17. HARTMANN SOLN [Concomitant]
     Active Substance: CALCIUM CHLORIDE\POTASSIUM CHLORIDE\SODIUM CHLORIDE\SODIUM LACTATE
     Route: 042
     Dates: start: 20151211, end: 20151211
  18. NORMAL SALINE [Concomitant]
     Active Substance: SODIUM CHLORIDE
     Route: 042
     Dates: start: 20151128, end: 20151128
  19. NORMAL SALINE [Concomitant]
     Active Substance: SODIUM CHLORIDE
     Route: 042
     Dates: start: 20151211, end: 20151211
  20. NASERON [Concomitant]
     Route: 042
     Dates: start: 20151211, end: 20151211
  21. PHAZYME [Concomitant]
     Active Substance: DIMETHICONE 410
     Indication: PROPHYLAXIS
     Route: 048
     Dates: start: 20151127, end: 20151211
  22. DENOGAN [Concomitant]
     Indication: PYREXIA
     Route: 042
     Dates: start: 20151128, end: 20151128
  23. TYLENOL [Concomitant]
     Active Substance: ACETAMINOPHEN
     Indication: PROPHYLAXIS
     Route: 048
     Dates: start: 20151128, end: 20151204
  24. GEMCITABINE [Suspect]
     Active Substance: GEMCITABINE\GEMCITABINE HYDROCHLORIDE
     Indication: CHOLANGIOCARCINOMA
     Route: 042
     Dates: start: 20151001, end: 20151001
  25. GEMCITABINE [Suspect]
     Active Substance: GEMCITABINE\GEMCITABINE HYDROCHLORIDE
     Route: 042
     Dates: start: 20151106, end: 20151106
  26. GEMCITABINE [Suspect]
     Active Substance: GEMCITABINE\GEMCITABINE HYDROCHLORIDE
     Route: 042
     Dates: start: 20151127, end: 20151127
  27. DUROGESIC [Concomitant]
     Active Substance: FENTANYL
     Indication: DISEASE COMPLICATION
     Route: 003
     Dates: start: 20150923, end: 20151216
  28. TARGIN [Concomitant]
     Active Substance: NALOXONE HYDROCHLORIDE\OXYCODONE HYDROCHLORIDE
     Indication: DISEASE COMPLICATION
     Route: 048
     Dates: start: 20151121
  29. LAMINA-G [Concomitant]
     Indication: PROPHYLAXIS
     Route: 048
     Dates: start: 20151022
  30. MACPERAN [Concomitant]
     Route: 042
     Dates: start: 20151128, end: 20151128
  31. PHOTOFRIN [Suspect]
     Active Substance: PORFIMER SODIUM
     Indication: CHOLANGIOCARCINOMA
     Route: 042
     Dates: start: 20150909, end: 20150909
  32. CISPLATIN. [Suspect]
     Active Substance: CISPLATIN
     Route: 042
     Dates: start: 20151218, end: 20151218
  33. RESOLOR [Concomitant]
     Active Substance: PRUCALOPRIDE SUCCINATE
     Indication: PROPHYLAXIS
     Route: 048
     Dates: start: 20151106, end: 20151212
  34. NASERON [Concomitant]
     Indication: PROPHYLAXIS
     Route: 042
     Dates: start: 20151121, end: 20151121
  35. GEMCITABINE [Suspect]
     Active Substance: GEMCITABINE\GEMCITABINE HYDROCHLORIDE
     Route: 042
     Dates: start: 20151010, end: 20151010
  36. CISPLATIN. [Suspect]
     Active Substance: CISPLATIN
     Route: 042
     Dates: start: 20151010, end: 20151010
  37. MUCOSTA [Concomitant]
     Active Substance: REBAMIPIDE
     Indication: PROPHYLAXIS
     Route: 048
     Dates: start: 20151022, end: 20151225
  38. ONSERAN [Concomitant]
     Indication: PROPHYLAXIS
     Route: 048
     Dates: start: 20151029, end: 20151126
  39. NORMAL SALINE [Concomitant]
     Active Substance: SODIUM CHLORIDE
     Indication: PROPHYLAXIS
     Route: 042
     Dates: start: 20151121, end: 20151121
  40. GEMCITABINE [Suspect]
     Active Substance: GEMCITABINE\GEMCITABINE HYDROCHLORIDE
     Route: 042
     Dates: start: 20151218, end: 20151218
  41. CISPLATIN. [Suspect]
     Active Substance: CISPLATIN
     Route: 042
     Dates: start: 20151211, end: 20151211
  42. TARGIN [Concomitant]
     Active Substance: NALOXONE HYDROCHLORIDE\OXYCODONE HYDROCHLORIDE
     Indication: DISEASE COMPLICATION
     Route: 048
     Dates: start: 20151025, end: 20151120
  43. SANCUSO [Concomitant]
     Active Substance: GRANISETRON
     Indication: PROPHYLAXIS
     Route: 003
     Dates: start: 20151120, end: 20151120
  44. SANCUSO [Concomitant]
     Active Substance: GRANISETRON
     Route: 003
     Dates: start: 20151126, end: 20151126
  45. NORMAL SALINE [Concomitant]
     Active Substance: SODIUM CHLORIDE
     Indication: PYREXIA
     Route: 042
     Dates: start: 20151127, end: 20151127
  46. MACPERAN [Concomitant]
     Indication: PROPHYLAXIS
     Route: 042
     Dates: start: 20151121, end: 20151121
  47. MACPERAN [Concomitant]
     Route: 042
     Dates: start: 20151211, end: 20151211
  48. BANAN [Concomitant]
     Active Substance: CEFPODOXIME PROXETIL
     Indication: PROPHYLAXIS
     Route: 048
     Dates: start: 20151128, end: 20151204
  49. GRASIN [Concomitant]
     Indication: PRODUCT USED FOR UNKNOWN INDICATION
     Dates: start: 20151215, end: 20151215
  50. GEMCITABINE [Suspect]
     Active Substance: GEMCITABINE\GEMCITABINE HYDROCHLORIDE
     Route: 042
     Dates: start: 20151121, end: 20151121
  51. CISPLATIN. [Suspect]
     Active Substance: CISPLATIN
     Route: 042
     Dates: start: 20151106, end: 20151106
  52. ONSERAN [Concomitant]
     Route: 048
     Dates: start: 20151214, end: 20151214
  53. NASERON [Concomitant]
     Route: 042
     Dates: start: 20151127, end: 20151127
  54. MACPERAN [Concomitant]
     Indication: PYREXIA
     Route: 042
     Dates: start: 20151127, end: 20151127

REACTIONS (2)
  - Pyrexia [Recovered/Resolved]
  - Septic shock [Recovered/Resolved]

NARRATIVE: CASE EVENT DATE: 20151212
